FAERS Safety Report 22301870 (Version 1)
Quarter: 2023Q2

REPORT INFORMATION
  Report Type: Report from Study
  Country: US (occurrence: US)
  Receive Date: 20230510
  Receipt Date: 20230510
  Transmission Date: 20230721
  Serious: Yes (Hospitalization)
  Sender: FDA-Public Use
  Company Number: US-ABBVIE-4757472

PATIENT
  Sex: Female

DRUGS (1)
  1. HUMIRA [Suspect]
     Active Substance: ADALIMUMAB
     Indication: Rheumatoid arthritis
     Dosage: FORM STRENGTH : 40 MG CITRATE FREE
     Route: 058
     Dates: start: 20220524

REACTIONS (6)
  - Gastric pH decreased [Unknown]
  - Oral fungal infection [Unknown]
  - Dry mouth [Unknown]
  - Angular cheilitis [Unknown]
  - Hypophagia [Unknown]
  - Oral pain [Unknown]
